FAERS Safety Report 5877099-9 (Version None)
Quarter: 2008Q3

REPORT INFORMATION
  Report Type: 
  Country: None (occurrence: None)
  Receive Date: 20080910
  Receipt Date: 20080905
  Transmission Date: 20090109
  Serious: Yes (Death, Other)
  Sender: FDA-Public Use
  Company Number: PHHY2008JP20535

PATIENT
  Age: 90 Year
  Sex: Female

DRUGS (1)
  1. EXJADE [Suspect]
     Indication: IRON OVERLOAD
     Route: 048

REACTIONS (2)
  - DEATH [None]
  - GASTROINTESTINAL OEDEMA [None]
